FAERS Safety Report 16218430 (Version 3)
Quarter: 2019Q2

REPORT INFORMATION
  Report Type: Report from Study
  Country: US (occurrence: US)
  Receive Date: 20190419
  Receipt Date: 20190614
  Transmission Date: 20190711
  Serious: Yes (Hospitalization, Other)
  Sender: FDA-Public Use
  Company Number: US-BAYER-2019-048841

PATIENT
  Age: 72 Year
  Sex: Female
  Weight: 66.21 kg

DRUGS (16)
  1. STIVARGA [Suspect]
     Active Substance: REGORAFENIB
     Indication: GASTROINTESTINAL STROMAL TUMOUR
     Dosage: DAILY DOSE 80 MG (21 DAYS, WITHHOLD FOR 7 OFF)
     Route: 048
     Dates: start: 20190419
  2. PRILOSEC [Concomitant]
     Active Substance: OMEPRAZOLE MAGNESIUM
     Dosage: UNK
  3. IMODIUM A-D [Concomitant]
     Active Substance: LOPERAMIDE HYDROCHLORIDE
     Dosage: UNK
  4. GLIPIZIDE. [Concomitant]
     Active Substance: GLIPIZIDE
     Dosage: 5 MG
  5. TRESIBA [Concomitant]
     Active Substance: INSULIN DEGLUDEC
     Dosage: UNK
  6. LISINOPRIL. [Concomitant]
     Active Substance: LISINOPRIL
     Dosage: UNK
  7. GLEEVEC [Concomitant]
     Active Substance: IMATINIB MESYLATE
     Dosage: UNK
  8. ANASTROZOLE. [Concomitant]
     Active Substance: ANASTROZOLE
     Dosage: 1 MG
  9. CHOLESTYRAMINE. [Concomitant]
     Active Substance: CHOLESTYRAMINE
  10. IMODIUM A-D [Concomitant]
     Active Substance: LOPERAMIDE HYDROCHLORIDE
     Dosage: UNK
  11. STIVARGA [Suspect]
     Active Substance: REGORAFENIB
     Indication: GASTROINTESTINAL STROMAL TUMOUR
     Dosage: 160 MG DAILY FOR 21 DAYS
     Route: 048
  12. STIVARGA [Suspect]
     Active Substance: REGORAFENIB
     Indication: GASTROINTESTINAL STROMAL TUMOUR
     Dosage: 160 MG (FOR 3 OF 4 WEEKS)
     Route: 048
     Dates: start: 20190228
  13. ZENPEP [Concomitant]
     Active Substance: PANCRELIPASE AMYLASE\PANCRELIPASE LIPASE\PANCRELIPASE PROTEASE
  14. ONDANSETRON [Concomitant]
     Active Substance: ONDANSETRON
  15. SUTENT [Concomitant]
     Active Substance: SUNITINIB MALATE
  16. ANASTRAZOLE DENK [Concomitant]
     Active Substance: ANASTROZOLE

REACTIONS (20)
  - Bronchitis [None]
  - Oedema peripheral [Recovered/Resolved]
  - Chest pain [None]
  - Hypersomnia [Unknown]
  - Pneumonia [None]
  - Peripheral swelling [None]
  - Herpes oesophagitis [None]
  - Product dose omission [Unknown]
  - Fatigue [None]
  - Malignant ascites [None]
  - Orthopnoea [None]
  - Dysphagia [None]
  - Hypoalbuminaemia [None]
  - Cough [None]
  - Hypophagia [None]
  - Rash macular [None]
  - Dyspnoea [None]
  - Dyspnoea exertional [None]
  - Diarrhoea [None]
  - Infection [None]

NARRATIVE: CASE EVENT DATE: 2019
